FAERS Safety Report 12873082 (Version 1)
Quarter: 2016Q4

REPORT INFORMATION
  Report Type: Spontaneous
  Country: LK (occurrence: LK)
  Receive Date: 20161021
  Receipt Date: 20161021
  Transmission Date: 20170207
  Serious: Yes (Hospitalization)
  Sender: FDA-Public Use
  Company Number: LK-DEPOMED, INC.-LK-2016DEP012471

PATIENT
  Age: 55 Year
  Sex: Male

DRUGS (2)
  1. BUPIVACAINE. [Suspect]
     Active Substance: BUPIVACAINE
     Indication: SPINAL ANAESTHESIA
     Dosage: 1.3 ML, SINGLE
     Route: 037
  2. FENTANYL. [Suspect]
     Active Substance: FENTANYL
     Indication: SPINAL ANAESTHESIA
     Dosage: 0.3 ML, SINGLE
     Route: 037

REACTIONS (6)
  - Paraplegia [Not Recovered/Not Resolved]
  - Pain [Unknown]
  - Spinal pain [Unknown]
  - Back pain [Unknown]
  - Muscular weakness [Not Recovered/Not Resolved]
  - Areflexia [Not Recovered/Not Resolved]
